FAERS Safety Report 10076642 (Version 1)
Quarter: 2014Q2

REPORT INFORMATION
  Report Type: Spontaneous
  Country: US (occurrence: US)
  Receive Date: 20140414
  Receipt Date: 20140414
  Transmission Date: 20141212
  Serious: No
  Sender: FDA-Public Use
  Company Number: US-PFIZER INC-2014103876

PATIENT
  Sex: Female

DRUGS (3)
  1. LYRICA [Suspect]
     Dosage: 50 MG, DAILY
  2. LYRICA [Suspect]
     Dosage: 50 MG, 2X/DAY
  3. LYRICA [Suspect]
     Dosage: UNK [75MG IN THE MORNING AND 100MG AT NIGHT

REACTIONS (3)
  - Drug ineffective [Unknown]
  - Pain [Unknown]
  - Middle insomnia [Unknown]
